FAERS Safety Report 16608220 (Version 1)
Quarter: 2019Q3

REPORT INFORMATION
  Report Type: Spontaneous
  Country: FR (occurrence: FR)
  Receive Date: 20190722
  Receipt Date: 20190722
  Transmission Date: 20191004
  Serious: Yes (Hospitalization)
  Sender: FDA-Public Use
  Company Number: FR-PFIZER INC-2019304372

PATIENT
  Age: 76 Year
  Sex: Male
  Weight: 57.5 kg

DRUGS (3)
  1. PRONTALGINE [CAFFEINE;CODEINE PHOSPHATE HEMIHYDRATE;PARACETAMOL] [Suspect]
     Active Substance: ACETAMINOPHEN\CAFFEINE\CODEINE
     Indication: POISONING DELIBERATE
     Dosage: 6 DF, SINGLE
     Route: 048
     Dates: start: 20190502, end: 20190502
  2. XANAX [Suspect]
     Active Substance: ALPRAZOLAM
     Indication: POISONING DELIBERATE
     Dosage: 30 DF, SINGLE
     Route: 048
     Dates: start: 20190502, end: 20190502
  3. IMOVANE [Suspect]
     Active Substance: ZOPICLONE
     Indication: POISONING DELIBERATE
     Dosage: 10 DF, SINGLE
     Route: 048
     Dates: start: 20190502, end: 20190502

REACTIONS (3)
  - Bradyphrenia [Recovered/Resolved]
  - Poisoning deliberate [Unknown]
  - Somnolence [Recovered/Resolved]

NARRATIVE: CASE EVENT DATE: 20190502
